FAERS Safety Report 13565568 (Version 3)
Quarter: 2023Q4

REPORT INFORMATION
  Report Type: Spontaneous
  Country: FR (occurrence: FR)
  Receive Date: 20170519
  Receipt Date: 20231005
  Transmission Date: 20240110
  Serious: Yes (Hospitalization, Disabling, Congenital Anomaly, Other)
  Sender: FDA-Public Use
  Company Number: FR-ABBVIE-15P-056-1432038-00

PATIENT
  Sex: Female

DRUGS (1)
  1. VALPROATE SODIUM [Suspect]
     Active Substance: VALPROATE SODIUM
     Indication: Maternal exposure timing unspecified
     Route: 064

REACTIONS (85)
  - Otitis media acute [Unknown]
  - Dyscalculia [Unknown]
  - Developmental delay [Not Recovered/Not Resolved]
  - Screaming [Unknown]
  - Neonatal tachycardia [Recovered/Resolved]
  - Initial insomnia [Unknown]
  - Educational problem [Unknown]
  - Foetal exposure during pregnancy [Unknown]
  - Autism spectrum disorder [Unknown]
  - Clinodactyly [Unknown]
  - Hypotonia [Unknown]
  - Stridor [Recovered/Resolved]
  - Disturbance in attention [Unknown]
  - Abnormal behaviour [Unknown]
  - Facial asymmetry [Unknown]
  - Psychomotor skills impaired [Unknown]
  - Tooth avulsion [Unknown]
  - Enuresis [Unknown]
  - Speech disorder [Unknown]
  - Exposure via breast milk [Unknown]
  - Supraventricular tachycardia [Recovered/Resolved]
  - Scoliosis [Unknown]
  - Aggression [Unknown]
  - Respiratory distress [Recovered/Resolved]
  - Learning disorder [Unknown]
  - Emotional disorder [Unknown]
  - Bradycardia [Unknown]
  - Agitation [Unknown]
  - Humerus fracture [Unknown]
  - Executive dysfunction [Unknown]
  - Fall [Unknown]
  - Dyslexia [Unknown]
  - Autonomic nervous system imbalance [Unknown]
  - Wound [Unknown]
  - Speech disorder developmental [Unknown]
  - Bronchiolitis [Unknown]
  - Language disorder [Unknown]
  - Strabismus [Unknown]
  - Congenital flat feet [Unknown]
  - Fine motor skill dysfunction [Unknown]
  - Apathy [Unknown]
  - Epilepsy [Unknown]
  - Personal relationship issue [Unknown]
  - Hyperacusis [Unknown]
  - Anxiety [Unknown]
  - Fear [Unknown]
  - Nasopharyngitis [Unknown]
  - Frustration tolerance decreased [Unknown]
  - Gastroenteritis [Unknown]
  - Joint laxity [Unknown]
  - Vomiting [Unknown]
  - Diarrhoea [Unknown]
  - Deformity of orbit [Unknown]
  - Feeding disorder [Unknown]
  - Nasal congestion [Unknown]
  - Gastrooesophageal reflux disease [Unknown]
  - Ear infection [Unknown]
  - Ear pain [Unknown]
  - Social (pragmatic) communication disorder [Unknown]
  - Cough [Unknown]
  - Otitis media [Unknown]
  - Cognitive disorder [Unknown]
  - Lack of spontaneous speech [Unknown]
  - Dysmorphism [Unknown]
  - Bronchitis [Unknown]
  - Otitis media acute [Unknown]
  - Memory impairment [Unknown]
  - Oropharyngeal pain [Unknown]
  - Stereotypy [Unknown]
  - Ligament sprain [Unknown]
  - Cerumen impaction [Unknown]
  - Joint injury [Unknown]
  - Fatigue [Unknown]
  - Lice infestation [Unknown]
  - Impaired reasoning [Unknown]
  - Dysgraphia [Unknown]
  - Dental caries [Unknown]
  - Otorrhoea [Unknown]
  - Visual acuity reduced [Unknown]
  - Auditory disorder [Unknown]
  - Rhinitis [Unknown]
  - Learning disability [Unknown]
  - Arachnodactyly [Unknown]
  - Fear [Unknown]
  - Intellectual disability [Unknown]

NARRATIVE: CASE EVENT DATE: 20000101
